FAERS Safety Report 9962525 (Version 1)
Quarter: 2014Q1

REPORT INFORMATION
  Report Type: Spontaneous
  Country: GB (occurrence: GB)
  Receive Date: 20140305
  Receipt Date: 20140305
  Transmission Date: 20141002
  Serious: Yes (Other)
  Sender: FDA-Public Use
  Company Number: GB-ASTRAZENECA-2014SE13188

PATIENT
  Age: 21 Year
  Sex: Female
  Weight: 71.2 kg

DRUGS (3)
  1. QUETIAPINE [Suspect]
     Indication: BIPOLAR I DISORDER
     Route: 048
  2. FLUOXETINE [Concomitant]
  3. SERTRALINE [Concomitant]

REACTIONS (2)
  - Confusional state [Recovered/Resolved with Sequelae]
  - Amnesia [Recovered/Resolved]
